FAERS Safety Report 6762029-8 (Version None)
Quarter: 2010Q2

REPORT INFORMATION
  Report Type: 
  Country: None (occurrence: None)
  Receive Date: 20100609
  Receipt Date: 20100531
  Transmission Date: 20101027
  Serious: Yes (Hospitalization)
  Sender: FDA-Public Use
  Company Number: FR-BRISTOL-MYERS SQUIBB COMPANY-15017965

PATIENT
  Age: 72 Year
  Sex: Female
  Weight: 71 kg

DRUGS (3)
  1. CETUXIMAB [Suspect]
     Indication: HEAD AND NECK CANCER
     Dosage: RECENT INF: 02MAR2010
     Route: 042
     Dates: start: 20100126
  2. CISPLATIN [Suspect]
     Indication: HEAD AND NECK CANCER
     Dosage: RECENT INF: 23FEB10
     Route: 042
     Dates: start: 20100126
  3. FLUOROURACIL [Suspect]
     Indication: HEAD AND NECK CANCER
     Dosage: RECENT DOSE: 23FEB10;DAY 1 TO 4
     Route: 042
     Dates: start: 20100126

REACTIONS (1)
  - GASTROINTESTINAL TUBE REMOVAL [None]
